FAERS Safety Report 23250923 (Version 1)
Quarter: 2023Q4

REPORT INFORMATION
  Report Type: Report from Study
  Country: IN (occurrence: IN)
  Receive Date: 20231201
  Receipt Date: 20231201
  Transmission Date: 20240110
  Serious: Yes (Other)
  Sender: FDA-Public Use
  Company Number: IN-002147023-NVSC2023IN253420

PATIENT
  Age: 66 Year
  Sex: Female

DRUGS (2)
  1. RIBOCICLIB [Suspect]
     Active Substance: RIBOCICLIB
     Indication: Product used for unknown indication
     Dosage: 600 MG, OTHER (ONCE DAILY FOR 21 DAYS FOLLOWED BY GAP OF 7 DAYS)
     Route: 048
  2. FULVESTRANT [Suspect]
     Active Substance: FULVESTRANT
     Indication: Product used for unknown indication
     Dosage: 500 MG (23RD MONTH DOSE)
     Route: 065
     Dates: start: 20231123

REACTIONS (4)
  - Metastases to lung [Unknown]
  - Metastases to lymph nodes [Unknown]
  - Haemorrhagic cyst [Unknown]
  - Positron emission tomogram abnormal [Unknown]

NARRATIVE: CASE EVENT DATE: 20230619
